FAERS Safety Report 10031740 (Version 2)
Quarter: 2014Q2

REPORT INFORMATION
  Report Type: Spontaneous
  Country: US (occurrence: US)
  Receive Date: 20140324
  Receipt Date: 20140515
  Transmission Date: 20141212
  Serious: Yes (Other)
  Sender: FDA-Public Use
  Company Number: US-PFIZER INC-2014083413

PATIENT
  Age: 81 Year
  Sex: Female

DRUGS (1)
  1. CELEBREX [Suspect]
     Dosage: 200 MG, UNK
     Dates: start: 1999, end: 20140320

REACTIONS (1)
  - Hypoacusis [Unknown]
